FAERS Safety Report 17618732 (Version 6)
Quarter: 2020Q2

REPORT INFORMATION
  Report Type: Spontaneous
  Country: US (occurrence: US)
  Receive Date: 20200402
  Receipt Date: 20200506
  Transmission Date: 20200713
  Serious: No
  Sender: FDA-Public Use
  Company Number: US-PFIZER INC-2020137823

PATIENT
  Age: 71 Year
  Sex: Female
  Weight: 63 kg

DRUGS (7)
  1. LYRICA [Suspect]
     Active Substance: PREGABALIN
     Dosage: UNK
     Route: 048
     Dates: start: 2007
  2. METOPROLOL SUCCINATE/METOPROLOL TARTRATE [Concomitant]
     Dosage: UNK
     Dates: start: 2000
  3. LYRICA [Suspect]
     Active Substance: PREGABALIN
     Indication: FIBROMYALGIA
     Dosage: 50 MG, 2X/DAY(50MG; TAKE ONE TWICE DAILY BY MOUTH)
     Route: 048
     Dates: start: 2006
  4. LYRICA [Suspect]
     Active Substance: PREGABALIN
     Dosage: 50 MG, 1X/DAY
     Route: 048
     Dates: end: 20200330
  5. LYRICA [Suspect]
     Active Substance: PREGABALIN
     Dosage: UNK
     Dates: start: 200709
  6. LYRICA [Suspect]
     Active Substance: PREGABALIN
     Dosage: 100 MG, DAILY (TAKE 2 CAPSULE(S) EVERY DAY BY ORAL ROUT FOR 90 DAYS)
     Route: 048
  7. LYRICA [Suspect]
     Active Substance: PREGABALIN
     Dosage: UNK

REACTIONS (9)
  - Product dose omission [Unknown]
  - Poor quality sleep [Unknown]
  - Tension [Unknown]
  - Musculoskeletal pain [Unknown]
  - Insomnia [Unknown]
  - Feeling abnormal [Unknown]
  - Discomfort [Unknown]
  - Intentional product misuse [Unknown]
  - Pain [Unknown]

NARRATIVE: CASE EVENT DATE: 2015
